FAERS Safety Report 6108722-1 (Version None)
Quarter: 2009Q1

REPORT INFORMATION
  Report Type: 
  Country: None (occurrence: None)
  Receive Date: 20090305
  Receipt Date: 20090122
  Transmission Date: 20090719
  Serious: Yes (Life-Threatening)
  Sender: FDA-Public Use
  Company Number: WAES 0901USA03345

PATIENT
  Age: 64 Year
  Sex: Male

DRUGS (3)
  1. INJ IVEMEND UNK [Suspect]
     Indication: PROPHYLAXIS
     Dosage: 115 MG/INJ
     Dates: start: 20081029, end: 20081029
  2. ALOXI [Concomitant]
  3. DEXAMETHASONE [Concomitant]

REACTIONS (2)
  - ABDOMINAL PAIN [None]
  - DYSPNOEA [None]
